FAERS Safety Report 24211420 (Version 1)
Quarter: 2024Q3

REPORT INFORMATION
  Report Type: Spontaneous
  Country: GB (occurrence: GB)
  Receive Date: 20240814
  Receipt Date: 20240814
  Transmission Date: 20241016
  Serious: Yes (Other)
  Sender: EISAI
  Company Number: GB-MHRA-TPP8209598C22275880YC1723021554322

PATIENT
  Age: 77 Year
  Sex: Female
  Weight: 63 kg

DRUGS (5)
  1. DONEPEZIL [Suspect]
     Active Substance: DONEPEZIL\DONEPEZIL HYDROCHLORIDE
     Indication: Ill-defined disorder
     Dosage: DOSE UNKNOWN
     Route: 048
     Dates: start: 20240712
  2. RISEDRONATE SODIUM [Concomitant]
     Active Substance: RISEDRONATE SODIUM
     Indication: Ill-defined disorder
     Dates: start: 20231018
  3. LETROZOLE [Concomitant]
     Active Substance: LETROZOLE
     Indication: Ill-defined disorder
     Dates: start: 20231115
  4. RAMIPRIL [Concomitant]
     Active Substance: RAMIPRIL
     Indication: Ill-defined disorder
     Dates: start: 20231115
  5. LIPITOR [Concomitant]
     Active Substance: ATORVASTATIN CALCIUM
     Indication: Ill-defined disorder
     Dates: start: 20240311

REACTIONS (1)
  - Vomiting [Recovering/Resolving]

NARRATIVE: CASE EVENT DATE: 20240712
